FAERS Safety Report 11892744 (Version 2)
Quarter: 2016Q1

REPORT INFORMATION
  Report Type: Report from Study
  Country: US (occurrence: US)
  Receive Date: 20160106
  Receipt Date: 20160301
  Transmission Date: 20160526
  Serious: Yes (Other)
  Sender: FDA-Public Use
  Company Number: US-BAYER-2015-473989

PATIENT
  Age: 34 Year
  Sex: Female
  Weight: 99.79 kg

DRUGS (6)
  1. XARELTO [Suspect]
     Active Substance: RIVAROXABAN
     Indication: THROMBOSIS
     Dosage: 15 MG, BID
     Route: 048
     Dates: start: 20151007
  2. VITAMINE C [Concomitant]
     Active Substance: ASCORBIC ACID
     Dosage: UNK
     Route: 048
     Dates: start: 2005
  3. VITAMIN D [Concomitant]
     Active Substance: CHOLECALCIFEROL
     Dosage: UNK
     Route: 048
     Dates: start: 2005
  4. BIOTIN [Concomitant]
     Active Substance: BIOTIN
     Dosage: UNK
     Route: 048
     Dates: start: 2005
  5. XARELTO [Suspect]
     Active Substance: RIVAROXABAN
     Indication: EMBOLISM VENOUS
     Dosage: UNK
  6. ACETYLSALICYLIC ACID({=100 MG) [Suspect]
     Active Substance: ASPIRIN
     Indication: PRODUCT USED FOR UNKNOWN INDICATION
     Dosage: 81 MG, UNK
     Route: 065

REACTIONS (5)
  - Contusion [Not Recovered/Not Resolved]
  - Rash papular [Recovering/Resolving]
  - Haemorrhage [Recovering/Resolving]
  - Vaginal haemorrhage [Not Recovered/Not Resolved]
  - Pruritus [Not Recovered/Not Resolved]

NARRATIVE: CASE EVENT DATE: 2015
